FAERS Safety Report 8381784-7 (Version None)
Quarter: 2012Q2

REPORT INFORMATION
  Report Type: 
  Country: None (occurrence: None)
  Receive Date: 20120427
  Receipt Date: 20120418
  Transmission Date: 20120825
  Serious: No
  Sender: FDA-Public Use
  Company Number: CA-145086

PATIENT
  Sex: Female

DRUGS (1)
  1. WINRHO [Suspect]
     Indication: IDIOPATHIC THROMBOCYTOPENIC PURPURA
     Dosage: (6000 ?G INTRAVENOUS (NOT OTHERWISE SPECIFIED))
     Route: 042
     Dates: start: 20100827, end: 20100827

REACTIONS (13)
  - BLOOD LACTATE DEHYDROGENASE INCREASED [None]
  - CHILLS [None]
  - NECK PAIN [None]
  - HAEMOLYSIS [None]
  - BLOOD BILIRUBIN INCREASED [None]
  - HAEMOGLOBIN DECREASED [None]
  - HEADACHE [None]
  - MYALGIA [None]
  - OVERDOSE [None]
  - EXTRAVASCULAR HAEMOLYSIS [None]
  - PYREXIA [None]
  - TACHYCARDIA [None]
  - WHITE BLOOD CELL COUNT INCREASED [None]
